FAERS Safety Report 10040603 (Version 2)
Quarter: 2014Q2

REPORT INFORMATION
  Report Type: Spontaneous
  Country: JP (occurrence: JP)
  Receive Date: 20140327
  Receipt Date: 20140407
  Transmission Date: 20141212
  Serious: Yes (Hospitalization)
  Sender: FDA-Public Use
  Company Number: JP-ROCHE-1368619

PATIENT
  Age: 67 Year
  Sex: Male

DRUGS (4)
  1. XELODA [Suspect]
     Indication: COLON CANCER
     Dosage: MOST RECENT DOSE :12/MAR/2014
     Route: 048
     Dates: start: 20140219
  2. TS-1 [Concomitant]
     Indication: COLON CANCER
     Route: 048
     Dates: start: 20130426
  3. IRINOTECAN HYDROCHLORIDE [Concomitant]
     Indication: COLON CANCER
     Route: 041
     Dates: start: 20130426
  4. ELPLAT [Concomitant]
     Indication: COLON CANCER RECURRENT
     Route: 041

REACTIONS (4)
  - Stomatitis [Recovering/Resolving]
  - Cheilitis [Recovering/Resolving]
  - Eye discharge [Recovering/Resolving]
  - Palmar-plantar erythrodysaesthesia syndrome [Recovering/Resolving]
